FAERS Safety Report 7342986-1 (Version None)
Quarter: 2011Q1

REPORT INFORMATION
  Report Type: 
  Country: None (occurrence: None)
  Receive Date: 20110310
  Receipt Date: 20110304
  Transmission Date: 20110831
  Serious: Yes (Death, Hospitalization)
  Sender: FDA-Public Use
  Company Number: PHHY2010JP76395

PATIENT
  Age: 88 Year
  Sex: Male

DRUGS (2)
  1. VOLTAREN [Suspect]
     Indication: BACK PAIN
     Dosage: 75 MG DAILY
     Route: 048
  2. VOLTAREN [Suspect]
     Dosage: 70 MG, UNK
     Route: 048
     Dates: end: 20060227

REACTIONS (8)
  - DISSEMINATED INTRAVASCULAR COAGULATION [None]
  - PNEUMONIA ASPIRATION [None]
  - HAEMATEMESIS [None]
  - ACIDOSIS [None]
  - GASTRIC ULCER HAEMORRHAGE [None]
  - RESPIRATORY FAILURE [None]
  - HAEMOGLOBIN DECREASED [None]
  - BLOOD UREA INCREASED [None]
